FAERS Safety Report 7067262-6 (Version None)
Quarter: 2010Q4

REPORT INFORMATION
  Report Type: 
  Country: None (occurrence: None)
  Receive Date: 20101028
  Receipt Date: 20101020
  Transmission Date: 20110411
  Serious: No
  Sender: FDA-Public Use
  Company Number: US-BIOGENIDEC-2010BI036726

PATIENT
  Age: 55 Year
  Sex: Male

DRUGS (2)
  1. AVONEX [Suspect]
     Indication: MULTIPLE SCLEROSIS
     Route: 030
     Dates: start: 20040102, end: 20050822
  2. AVONEX [Suspect]
     Route: 030
     Dates: start: 20051020, end: 20101006

REACTIONS (2)
  - BURNING SENSATION [None]
  - TENDERNESS [None]
